FAERS Safety Report 17368553 (Version 2)
Quarter: 2020Q1

REPORT INFORMATION
  Report Type: Report from Study
  Country: NL (occurrence: NL)
  Receive Date: 20200204
  Receipt Date: 20200214
  Transmission Date: 20200409
  Serious: Yes (Death, Hospitalization, Other)
  Sender: FDA-Public Use
  Company Number: PHHY2019NL097696

PATIENT
  Age: 66 Year
  Sex: Male

DRUGS (1)
  1. SANDOSTATIN LAR DEPOT [Suspect]
     Active Substance: OCTREOTIDE ACETATE
     Indication: HEREDITARY HAEMORRHAGIC TELANGIECTASIA
     Dosage: UNK, QMO(20 MG/2 ML)
     Route: 030

REACTIONS (6)
  - Gastrointestinal disorder [Unknown]
  - Groin abscess [Not Recovered/Not Resolved]
  - Post procedural complication [Fatal]
  - Anastomotic leak [Fatal]
  - Renal impairment [Unknown]
  - Product use in unapproved indication [Unknown]

NARRATIVE: CASE EVENT DATE: 20190424
